FAERS Safety Report 7285888-1 (Version None)
Quarter: 2011Q1

REPORT INFORMATION
  Report Type: 
  Country: None (occurrence: None)
  Receive Date: 20110210
  Receipt Date: 20110202
  Transmission Date: 20110831
  Serious: Yes (Hospitalization)
  Sender: FDA-Public Use
  Company Number: FR-PFIZER INC-2011022816

PATIENT
  Age: 80 Year
  Sex: Female

DRUGS (8)
  1. METFORMIN [Concomitant]
     Dosage: 850 MG, 3X/DAY
  2. IKOREL [Concomitant]
     Dosage: 20 MG, 2X/DAY
  3. ZAMADOL [Suspect]
     Indication: ARTHRALGIA
     Dosage: 50 MG, 2X/DAY
     Route: 048
     Dates: start: 20101228
  4. LEVOTHYROXINE [Concomitant]
     Dosage: 50 UG, UNK
  5. BI-PROFENID [Suspect]
     Indication: ARTHRALGIA
     Dosage: 150 MG, 2X/DAY
     Route: 048
     Dates: start: 20101231, end: 20110104
  6. ACETAMINOPHEN [Suspect]
     Indication: ARTHRALGIA
     Dosage: 1000 MG, 3X/DAY
     Route: 048
     Dates: start: 20101229
  7. MIANSERIN [Concomitant]
     Dosage: 50 MG, UNK
  8. INIPOMP [Suspect]
     Indication: PROPHYLAXIS AGAINST GASTROINTESTINAL ULCER
     Dosage: 20 MG, DAILY
     Route: 048
     Dates: start: 20101231, end: 20110104

REACTIONS (1)
  - RENAL FAILURE ACUTE [None]
